FAERS Safety Report 8383489-5 (Version None)
Quarter: 2012Q2

REPORT INFORMATION
  Report Type: 
  Country: None (occurrence: None)
  Receive Date: 20120524
  Receipt Date: 20120521
  Transmission Date: 20120825
  Serious: Yes (Other)
  Sender: FDA-Public Use
  Company Number: PHHY2012DE024587

PATIENT
  Sex: Male
  Weight: 0.57 kg

DRUGS (2)
  1. KONAKION [Concomitant]
  2. MYFORTIC [Suspect]
     Route: 064

REACTIONS (2)
  - RESPIRATORY DISORDER NEONATAL [None]
  - UMBILICAL HERNIA [None]
